FAERS Safety Report 12678499 (Version 1)
Quarter: 2016Q3

REPORT INFORMATION
  Report Type: Spontaneous
  Country: US (occurrence: US)
  Receive Date: 20160823
  Receipt Date: 20160823
  Transmission Date: 20161109
  Serious: Yes (Hospitalization)
  Sender: FDA-Public Use
  Company Number: US-PRESTIUM-2016RN000262

PATIENT
  Age: 5 Year
  Sex: Male

DRUGS (3)
  1. SYMMETREL [Suspect]
     Active Substance: AMANTADINE HYDROCHLORIDE
     Indication: PRODUCT USED FOR UNKNOWN INDICATION
     Route: 065
  2. LITHIUM CARBONATE. [Suspect]
     Active Substance: LITHIUM CARBONATE
     Indication: BIPOLAR DISORDER
     Route: 065
  3. RITALIN [Suspect]
     Active Substance: METHYLPHENIDATE HYDROCHLORIDE
     Indication: PRODUCT USED FOR UNKNOWN INDICATION
     Route: 065

REACTIONS (25)
  - Sinus node dysfunction [Recovered/Resolved]
  - Electrocardiogram T wave amplitude decreased [Recovered/Resolved]
  - Atrioventricular block first degree [Recovered/Resolved]
  - Vomiting [Unknown]
  - Ataxia [Unknown]
  - Pyrexia [Recovered/Resolved]
  - Hypotonia [Unknown]
  - Electrocardiogram QT prolonged [Recovered/Resolved]
  - Blood thyroid stimulating hormone increased [Unknown]
  - Disorientation [Unknown]
  - Electrocardiogram QRS complex prolonged [Recovered/Resolved]
  - Electrocardiogram ST segment depression [Recovered/Resolved]
  - Electrocardiogram T wave inversion [Recovered/Resolved]
  - Agitation [Unknown]
  - Dysarthria [Unknown]
  - Electrolyte imbalance [Recovered/Resolved]
  - Aggression [Unknown]
  - Fluid intake reduced [Recovered/Resolved]
  - Blood creatinine increased [Unknown]
  - Toxicity to various agents [Recovered/Resolved]
  - Nodal rhythm [Recovered/Resolved]
  - Diarrhoea [Unknown]
  - Gait disturbance [Unknown]
  - Tremor [Unknown]
  - Antipsychotic drug level above therapeutic [Recovered/Resolved]
